FAERS Safety Report 7375551-0 (Version None)
Quarter: 2011Q1

REPORT INFORMATION
  Report Type: 
  Country: None (occurrence: None)
  Receive Date: 20110325
  Receipt Date: 20110228
  Transmission Date: 20110831
  Serious: Yes (Hospitalization, Other)
  Sender: FDA-Public Use
  Company Number: US-BAYER-201030415NA

PATIENT
  Sex: Female

DRUGS (6)
  1. ZOLOFT [Concomitant]
  2. YAZ [Suspect]
     Indication: ORAL CONTRACEPTION
     Route: 048
     Dates: start: 20010101
  3. YASMIN [Suspect]
     Indication: ORAL CONTRACEPTION
     Route: 048
     Dates: start: 20010101
  4. ZANTAC [Concomitant]
  5. MULTI-VITAMIN [Concomitant]
  6. PROTONIX [Concomitant]
     Dosage: 40 MG, UNK
     Dates: start: 20020731

REACTIONS (3)
  - BILIARY DYSKINESIA [None]
  - GALLBLADDER INJURY [None]
  - CHOLECYSTITIS CHRONIC [None]
